FAERS Safety Report 18478314 (Version 1)
Quarter: 2020Q4

REPORT INFORMATION
  Report Type: Spontaneous
  Country: US (occurrence: US)
  Receive Date: 20201109
  Receipt Date: 20201109
  Transmission Date: 20210114
  Serious: No
  Sender: FDA-Public Use
  Company Number: US-HETERO-HET2020US01178

PATIENT

DRUGS (1)
  1. MONTELUKAST [Suspect]
     Active Substance: MONTELUKAST SODIUM
     Indication: DERMATITIS ALLERGIC
     Dosage: UNK
     Route: 048

REACTIONS (3)
  - Hyperhidrosis [Unknown]
  - Body temperature increased [Unknown]
  - Pruritus [Unknown]
